FAERS Safety Report 8597020-2 (Version None)
Quarter: 2012Q3

REPORT INFORMATION
  Report Type: 
  Country: None (occurrence: None)
  Receive Date: 20120816
  Receipt Date: 20120808
  Transmission Date: 20120928
  Serious: Yes (Other)
  Sender: FDA-Public Use
  Company Number: US-AMGEN-USASP2012049781

PATIENT
  Age: 76 Year
  Sex: Female
  Weight: 32.472 kg

DRUGS (6)
  1. HUMIRA [Concomitant]
     Indication: PSORIASIS
     Dosage: 40 MG, Q2WK
     Route: 058
     Dates: start: 20111201, end: 20120101
  2. HUMIRA [Concomitant]
     Dosage: 40 MG, Q2WK
     Route: 058
     Dates: start: 20120101
  3. ETANERCEPT [Suspect]
     Indication: PRODUCT USED FOR UNKNOWN INDICATION
     Dosage: UNK
     Dates: end: 20110101
  4. ESOMEPRAZOLE SODIUM [Concomitant]
     Dosage: UNK
  5. ATORVASTATIN CALCIUM [Concomitant]
     Dosage: UNK
  6. RALOXIFENE HYDROCHLORIDE [Concomitant]
     Dosage: UNK

REACTIONS (2)
  - LIP AND/OR ORAL CAVITY CANCER [None]
  - SENSORY DISTURBANCE [None]
